FAERS Safety Report 5416750-4 (Version None)
Quarter: 2007Q3

REPORT INFORMATION
  Report Type: 
  Country: None (occurrence: None)
  Receive Date: 20070816
  Receipt Date: 20070803
  Transmission Date: 20080115
  Serious: Yes (Other)
  Sender: FDA-Public Use
  Company Number: TN-AMGEN-US237461

PATIENT
  Age: 54 Year
  Sex: Female

DRUGS (3)
  1. ENBREL [Suspect]
     Indication: RHEUMATOID ARTHRITIS
     Route: 058
     Dates: start: 20070701
  2. ISONIAZID [Suspect]
     Indication: TUBERCULOSIS
     Dosage: UNKNOWN
     Dates: start: 20070701
  3. RIFADIN [Suspect]
     Indication: TUBERCULOSIS
     Dosage: UNKNOWN
     Dates: start: 20070701

REACTIONS (3)
  - ABDOMINAL PAIN UPPER [None]
  - CHEST PAIN [None]
  - HEADACHE [None]
